FAERS Safety Report 7176468-7 (Version None)
Quarter: 2010Q4

REPORT INFORMATION
  Report Type: 
  Country: None (occurrence: None)
  Receive Date: 20101220
  Receipt Date: 20101216
  Transmission Date: 20110411
  Serious: Yes (Death)
  Sender: FDA-Public Use
  Company Number: FR-B.I. PHARMACEUTICALS,INC./RIDGEFIELD-2010-FF-01023FF

PATIENT
  Sex: Male

DRUGS (11)
  1. ATROVENT [Suspect]
     Route: 055
     Dates: start: 20101122, end: 20101122
  2. BRICANYL [Suspect]
     Route: 055
     Dates: start: 20101121, end: 20101121
  3. BRICANYL [Suspect]
     Route: 055
     Dates: start: 20101122, end: 20101122
  4. PREVISCAN [Concomitant]
     Route: 048
  5. ATARAX [Concomitant]
     Dosage: 25 MG
     Route: 048
  6. LASIX [Concomitant]
     Dosage: 240 MG
     Route: 042
     Dates: start: 20101121, end: 20101122
  7. EXFORGE [Concomitant]
     Dosage: 160/10 ONCE DAILY
  8. FLECAINE LP [Concomitant]
     Dosage: 100 MG
     Route: 048
  9. NEBIVOLOL HCL [Concomitant]
     Dosage: 5 MG
     Route: 048
  10. LANTUS [Concomitant]
  11. ACTRAPID [Concomitant]

REACTIONS (3)
  - ACUTE PULMONARY OEDEMA [None]
  - RENAL FAILURE [None]
  - SUDDEN DEATH [None]
